FAERS Safety Report 7178226-6 (Version None)
Quarter: 2010Q4

REPORT INFORMATION
  Report Type: 
  Country: None (occurrence: None)
  Receive Date: 20101220
  Receipt Date: 20101118
  Transmission Date: 20110411
  Serious: Yes (Death, Other)
  Sender: FDA-Public Use
  Company Number: US-BAXTER-2008BH003742

PATIENT
  Age: 77 Year
  Sex: Female
  Weight: 154 kg

DRUGS (38)
  1. HEPARIN SODIUM INJECTION [Suspect]
     Indication: THROMBOSIS PROPHYLAXIS
     Route: 010
     Dates: start: 20071120, end: 20071212
  2. HEPARIN SODIUM INJECTION [Suspect]
     Route: 042
     Dates: start: 20071128, end: 20071128
  3. HEPARIN SODIUM INJECTION [Suspect]
     Route: 042
     Dates: start: 20071120, end: 20071122
  4. HEPARIN SODIUM INJECTION [Suspect]
     Route: 042
     Dates: start: 20071130, end: 20071130
  5. HEPARIN SODIUM INJECTION [Suspect]
     Route: 042
     Dates: start: 20071124, end: 20071127
  6. HEPARIN SODIUM INJECTION [Suspect]
     Route: 042
     Dates: start: 20071120, end: 20071126
  7. HEPARIN SODIUM INJECTION [Suspect]
     Route: 042
     Dates: start: 20071126, end: 20071126
  8. HEPARIN SODIUM INJECTION [Suspect]
     Route: 042
     Dates: start: 20071121, end: 20071121
  9. HEPARIN SODIUM INJECTION [Suspect]
     Route: 042
     Dates: start: 20071123, end: 20071125
  10. HEPARIN SODIUM INJECTION [Suspect]
     Route: 042
     Dates: start: 20071203, end: 20071203
  11. HEPARIN SODIUM INJECTION [Suspect]
     Route: 042
     Dates: start: 20071128, end: 20071128
  12. HEPARIN SODIUM INJECTION [Suspect]
     Route: 042
     Dates: start: 20071205, end: 20071205
  13. HEPARIN SODIUM INJECTION [Suspect]
     Route: 042
     Dates: start: 20071130, end: 20071130
  14. HEPARIN SODIUM 10,000 UNITS IN SODIUM CHLORIDE 0.45% [Suspect]
     Indication: THROMBOSIS PROPHYLAXIS
     Route: 042
     Dates: start: 20071120, end: 20071120
  15. HEPARIN SODIUM 10,000 UNITS IN SODIUM CHLORIDE 0.45% [Suspect]
     Route: 042
     Dates: start: 20071119, end: 20071119
  16. HEPARIN SODIUM 10,000 UNITS IN SODIUM CHLORIDE 0.45% [Suspect]
     Route: 042
     Dates: start: 20071120, end: 20071127
  17. HEPARIN SODIUM 10,000 UNITS IN SODIUM CHLORIDE 0.45% [Suspect]
     Route: 042
     Dates: start: 20071126, end: 20071126
  18. DESLORATADINE [Concomitant]
     Indication: PRODUCT USED FOR UNKNOWN INDICATION
     Route: 048
  19. LASIX [Concomitant]
     Indication: PRODUCT USED FOR UNKNOWN INDICATION
     Route: 048
  20. OXYCONTIN [Concomitant]
     Indication: PRODUCT USED FOR UNKNOWN INDICATION
     Route: 048
  21. ASCORBIC ACID [Concomitant]
     Indication: PRODUCT USED FOR UNKNOWN INDICATION
     Route: 065
  22. CLONIDINE [Concomitant]
     Indication: PRODUCT USED FOR UNKNOWN INDICATION
     Route: 065
  23. LANOXIN [Concomitant]
     Indication: PRODUCT USED FOR UNKNOWN INDICATION
     Route: 065
  24. FERROUS SULFATE [Concomitant]
     Indication: PRODUCT USED FOR UNKNOWN INDICATION
     Route: 065
  25. LISINOPRIL [Concomitant]
     Indication: PRODUCT USED FOR UNKNOWN INDICATION
     Route: 065
  26. METOPROLOL TARTRATE [Concomitant]
     Indication: PRODUCT USED FOR UNKNOWN INDICATION
     Route: 065
  27. PAXIL [Concomitant]
     Indication: PRODUCT USED FOR UNKNOWN INDICATION
     Route: 065
  28. FORTEO [Concomitant]
     Indication: PRODUCT USED FOR UNKNOWN INDICATION
     Route: 030
  29. NOVOLIN N [Concomitant]
     Indication: PRODUCT USED FOR UNKNOWN INDICATION
     Route: 058
  30. NOVOLIN N [Concomitant]
     Route: 058
  31. DARVOCET-N 100 [Concomitant]
     Indication: PRODUCT USED FOR UNKNOWN INDICATION
     Route: 048
  32. RESTORIL [Concomitant]
     Indication: PRODUCT USED FOR UNKNOWN INDICATION
     Route: 048
  33. OS-CAL D [Concomitant]
     Indication: PRODUCT USED FOR UNKNOWN INDICATION
     Route: 048
  34. PREGABALIN [Concomitant]
     Indication: PRODUCT USED FOR UNKNOWN INDICATION
     Route: 065
  35. MULTI-VITAMINS [Concomitant]
     Indication: PRODUCT USED FOR UNKNOWN INDICATION
     Route: 065
  36. SIMVASTATIN [Concomitant]
     Indication: PRODUCT USED FOR UNKNOWN INDICATION
     Route: 065
  37. ARANESP [Concomitant]
     Indication: PRODUCT USED FOR UNKNOWN INDICATION
     Route: 065
  38. WARFARIN SODIUM [Concomitant]
     Indication: PRODUCT USED FOR UNKNOWN INDICATION
     Route: 065

REACTIONS (13)
  - ASTHENIA [None]
  - ATRIAL FIBRILLATION [None]
  - CARDIAC FAILURE CONGESTIVE [None]
  - CONFUSIONAL STATE [None]
  - DIARRHOEA [None]
  - DYSPNOEA [None]
  - HYPOTENSION [None]
  - INCOHERENT [None]
  - MALAISE [None]
  - NAUSEA [None]
  - SWELLING [None]
  - TREMOR [None]
  - UNRESPONSIVE TO STIMULI [None]
